FAERS Safety Report 5591956-2 (Version None)
Quarter: 2008Q1

REPORT INFORMATION
  Report Type: 
  Country: None (occurrence: None)
  Receive Date: 20080115
  Receipt Date: 20080107
  Transmission Date: 20080703
  Serious: Yes (Hospitalization)
  Sender: FDA-Public Use
  Company Number: US-ELI_LILLY_AND_COMPANY-US200712003012

PATIENT
  Sex: Female

DRUGS (2)
  1. BYETTA [Suspect]
     Dosage: 10 UG, 2/D
     Route: 058
  2. NOVOLIN 50/50 [Concomitant]
     Indication: DIABETES MELLITUS
     Dosage: 20 U, EACH EVENING

REACTIONS (1)
  - HOSPITALISATION [None]
